FAERS Safety Report 7950197 (Version 6)
Quarter: 2016Q1

REPORT INFORMATION
  Report Type: Spontaneous
  Country: FR (occurrence: FR)
  Receive Date: 20110518
  Receipt Date: 20160217
  Transmission Date: 20160526
  Serious: Yes (Other)
  Sender: FDA-Public Use
  Company Number: FR-ASTRAZENECA-2011SE28385

PATIENT
  Age: 55 Year
  Sex: Female
  Weight: 66 kg

DRUGS (1)
  1. ARIMIDEX [Suspect]
     Active Substance: ANASTROZOLE
     Indication: INVASIVE DUCTAL BREAST CARCINOMA
     Route: 048
     Dates: start: 200404, end: 200606

REACTIONS (11)
  - Memory impairment [Not Recovered/Not Resolved]
  - Back pain [Recovering/Resolving]
  - Spinal osteoarthritis [Recovering/Resolving]
  - Depression [Recovered/Resolved]
  - Tendonitis [Recovering/Resolving]
  - Sciatica [Recovering/Resolving]
  - Rib fracture [Unknown]
  - Visual acuity reduced [Unknown]
  - Muscle spasms [Recovered/Resolved]
  - Foot deformity [Unknown]
  - Aphasia [Unknown]

NARRATIVE: CASE EVENT DATE: 2004
